FAERS Safety Report 20068472 (Version 1)
Quarter: 2021Q4

REPORT INFORMATION
  Report Type: Spontaneous
  Country: US (occurrence: US)
  Receive Date: 20211115
  Receipt Date: 20211115
  Transmission Date: 20220303
  Serious: No
  Sender: FDA-Public Use
  Company Number: US-GLAXOSMITHKLINE-US2021AMR232109

PATIENT

DRUGS (2)
  1. ZEJULA [Suspect]
     Active Substance: NIRAPARIB
     Indication: Neoplasm malignant
     Dosage: UNK
  2. ZEJULA [Suspect]
     Active Substance: NIRAPARIB
     Dosage: UNK, DOSE DECREASED

REACTIONS (8)
  - Constipation [Unknown]
  - Blood pressure increased [Unknown]
  - Anxiety [Unknown]
  - Insomnia [Unknown]
  - Increased tendency to bruise [Unknown]
  - Malaise [Unknown]
  - Adverse drug reaction [Unknown]
  - Drug ineffective [Unknown]
